FAERS Safety Report 12413287 (Version 10)
Quarter: 2019Q2

REPORT INFORMATION
  Report Type: Spontaneous
  Country: JP (occurrence: JP)
  Receive Date: 20160527
  Receipt Date: 20190601
  Transmission Date: 20190711
  Serious: Yes (Hospitalization)
  Sender: FDA-Public Use
  Company Number: JP-UNITED THERAPEUTICS-UNT-2016-008492

PATIENT
  Age: 47 Year
  Sex: Female
  Weight: 35 kg

DRUGS (17)
  1. REMODULIN [Suspect]
     Active Substance: TREPROSTINIL
     Dosage: 0.089 ?G/KG, CONTINUING
     Route: 058
     Dates: start: 20160515, end: 20160608
  2. MIYA-BM [Concomitant]
     Active Substance: CLOSTRIDIUM BUTYRICUM SPORES STRAIN M-55
     Indication: PRODUCT USED FOR UNKNOWN INDICATION
     Dosage: 60 MG, TOTAL DAILY DOSE
     Route: 048
  3. REMODULIN [Suspect]
     Active Substance: TREPROSTINIL
     Dosage: 0.0614 ?G/KG, CONTINUING
     Route: 058
     Dates: start: 20160608, end: 20160608
  4. FUROSEMIDE. [Concomitant]
     Active Substance: FUROSEMIDE
     Indication: PRODUCT USED FOR UNKNOWN INDICATION
     Dosage: 40 MG, TOTAL DAILY DOSE
     Route: 048
  5. ALDACTONE [Concomitant]
     Active Substance: SPIRONOLACTONE
     Indication: PRODUCT USED FOR UNKNOWN INDICATION
     Dosage: 25 MG, TOTAL DAILY DOSE
     Route: 048
  6. REVATIO [Concomitant]
     Active Substance: SILDENAFIL CITRATE
     Indication: PULMONARY ARTERIAL HYPERTENSION
     Dosage: 20 MG, Q8H (60 MG TOTAL DAILY DOSE)
     Route: 048
     Dates: start: 20080507
  7. REMODULIN [Suspect]
     Active Substance: TREPROSTINIL
     Dosage: 0.069 ?G/KG, CONTINUING
     Route: 058
     Dates: start: 20160501
  8. REMODULIN [Suspect]
     Active Substance: TREPROSTINIL
     Dosage: 0.069 ?G/KG, CONTINUING
     Route: 058
     Dates: start: 20160607, end: 20160608
  9. TRACLEER [Concomitant]
     Active Substance: BOSENTAN
     Dosage: 125 MG TOTAL DAILY DOSE
     Route: 048
  10. REVATIO [Concomitant]
     Active Substance: SILDENAFIL CITRATE
     Dosage: 20 MG, TOTAL DAILY DOSE
     Route: 048
  11. FLOLAN [Suspect]
     Active Substance: EPOPROSTENOL SODIUM
     Dosage: UNK
     Route: 041
     Dates: start: 20050507, end: 20160429
  12. REMODULIN [Suspect]
     Active Substance: TREPROSTINIL
     Indication: PULMONARY ARTERIAL HYPERTENSION
     Dosage: 0.068 ?G/KG, CONTINUING
     Route: 058
     Dates: start: 20160430, end: 20160608
  13. REMODULIN [Suspect]
     Active Substance: TREPROSTINIL
     Dosage: 0.083 ?G/KG, CONTINUING
     Route: 058
     Dates: start: 20160515, end: 20160608
  14. REMODULIN [Suspect]
     Active Substance: TREPROSTINIL
     Dosage: 0.084 ?G/KG, CONTINUING
     Route: 058
     Dates: start: 20160515, end: 20160608
  15. FLOLAN [Suspect]
     Active Substance: EPOPROSTENOL SODIUM
     Indication: PULMONARY ARTERIAL HYPERTENSION
     Dosage: UNK
     Route: 041
     Dates: start: 20050927, end: 20120506
  16. TRACLEER [Concomitant]
     Active Substance: BOSENTAN
     Indication: PULMONARY ARTERIAL HYPERTENSION
     Dosage: 125 MG, BID (250 MG TOTAL DAILY DOSE)
     Route: 048
     Dates: start: 20060609
  17. INDERAL [Concomitant]
     Active Substance: PROPRANOLOL HYDROCHLORIDE
     Indication: PRODUCT USED FOR UNKNOWN INDICATION
     Dosage: 30 MG, UNK
     Route: 048
     Dates: start: 20160516

REACTIONS (5)
  - Atrial tachycardia [Recovered/Resolved]
  - Pain in extremity [Not Recovered/Not Resolved]
  - Hyperthyroidism [Recovering/Resolving]
  - Infusion site pain [Recovered/Resolved]
  - Nausea [Recovering/Resolving]

NARRATIVE: CASE EVENT DATE: 20160430
